FAERS Safety Report 18300708 (Version 1)
Quarter: 2020Q3

REPORT INFORMATION
  Report Type: Spontaneous
  Country: US (occurrence: US)
  Receive Date: 20200923
  Receipt Date: 20200923
  Transmission Date: 20201103
  Serious: No
  Sender: FDA-Public Use
  Company Number: None

PATIENT
  Age: 61 Year
  Sex: Male

DRUGS (1)
  1. MESALAMINE (MESALAMINE 1200MG CAP, EC) [Suspect]
     Active Substance: MESALAMINE
     Indication: CROHN^S DISEASE
     Route: 048
     Dates: start: 20190401, end: 20200409

REACTIONS (1)
  - Eosinophilia [None]

NARRATIVE: CASE EVENT DATE: 20200707
